FAERS Safety Report 16091206 (Version 1)
Quarter: 2019Q1

REPORT INFORMATION
  Report Type: Spontaneous
  Country: US (occurrence: US)
  Receive Date: 20190319
  Receipt Date: 20190319
  Transmission Date: 20190418
  Serious: Yes (Hospitalization)
  Sender: FDA-Public Use
  Company Number: US-PARI RESPIRATORY EQUIPMENT, INC.-2019PAR00018

PATIENT
  Sex: Female

DRUGS (15)
  1. ADVAIR HFA [Concomitant]
     Active Substance: FLUTICASONE PROPIONATE\SALMETEROL XINAFOATE
  2. ECHINACEA [Concomitant]
     Active Substance: ECHINACEA, UNSPECIFIED
  3. PULMOZYME [Concomitant]
     Active Substance: DORNASE ALFA
  4. ZYRTEC [Concomitant]
     Active Substance: CETIRIZINE HYDROCHLORIDE
  5. VITAMIN D [Concomitant]
     Active Substance: CHOLECALCIFEROL
  6. CAYSTON [Concomitant]
     Active Substance: AZTREONAM
  7. DEPO-PROVERA [Concomitant]
     Active Substance: MEDROXYPROGESTERONE ACETATE
  8. PAXIL [Concomitant]
     Active Substance: PAROXETINE HYDROCHLORIDE
  9. KITABIS PAK [Suspect]
     Active Substance: TOBRAMYCIN
     Indication: CYSTIC FIBROSIS
     Dosage: 300 MG, 2X/DAY
  10. PRILOSEC [Concomitant]
     Active Substance: OMEPRAZOLE MAGNESIUM
  11. AQUADEKS [Concomitant]
     Active Substance: MINERALS\VITAMINS
  12. COMPLETE MULTIVITAMIN [Concomitant]
     Active Substance: VITAMINS
  13. SINGULAIR [Concomitant]
     Active Substance: MONTELUKAST SODIUM
  14. MINOCYCLINE [Concomitant]
     Active Substance: MINOCYCLINE\MINOCYCLINE HYDROCHLORIDE
  15. AZITHROMYCIN ANHYDROUS. [Concomitant]
     Active Substance: AZITHROMYCIN ANHYDROUS

REACTIONS (3)
  - Hospitalisation [Not Recovered/Not Resolved]
  - Contraindicated product administered [Unknown]
  - Drug hypersensitivity [Unknown]
